FAERS Safety Report 5983928-0 (Version None)
Quarter: 2008Q4

REPORT INFORMATION
  Report Type: 
  Country: None (occurrence: None)
  Receive Date: 20081208
  Receipt Date: 20081124
  Transmission Date: 20090506
  Serious: Yes (Hospitalization)
  Sender: FDA-Public Use
  Company Number: FR-ROCHE-588109

PATIENT
  Sex: Female

DRUGS (1)
  1. VALGANCICLOVIR HCL [Suspect]
     Indication: CYTOMEGALOVIRUS INFECTION
     Dosage: FREQUENCY:QD
     Route: 048
     Dates: start: 20080506

REACTIONS (3)
  - HYDROPNEUMOTHORAX [None]
  - PULMONARY EMBOLISM [None]
  - RENAL FAILURE [None]
